FAERS Safety Report 7986130-6 (Version None)
Quarter: 2011Q4

REPORT INFORMATION
  Report Type: 
  Country: None (occurrence: None)
  Receive Date: 20111216
  Receipt Date: 20111208
  Transmission Date: 20120403
  Serious: Yes (Other)
  Sender: FDA-Public Use
  Company Number: US-BAYER-2011-118378

PATIENT
  Age: 34 Year
  Sex: Female

DRUGS (1)
  1. MIRENA [Suspect]
     Indication: CONTRACEPTION
     Dosage: DAILY DOSE 20 ?G
     Route: 015
     Dates: start: 20101123, end: 20111110

REACTIONS (5)
  - SKIN DISCOLOURATION [None]
  - MENORRHAGIA [None]
  - UTERINE PERFORATION [None]
  - MOOD SWINGS [None]
  - MEDICAL DEVICE COMPLICATION [None]
